FAERS Safety Report 5935157-4 (Version None)
Quarter: 2008Q4

REPORT INFORMATION
  Report Type: 
  Country: None (occurrence: None)
  Receive Date: 20081028
  Receipt Date: 20081013
  Transmission Date: 20090506
  Serious: Yes (Death, Hospitalization, Other)
  Sender: FDA-Public Use
  Company Number: CH-2008-0853

PATIENT
  Sex: Male

DRUGS (5)
  1. NAVELBINE [Suspect]
     Indication: ADENOCARCINOMA
     Dates: start: 20080716
  2. CARBOPLATIN [Suspect]
     Indication: NON-SMALL CELL LUNG CANCER
     Dosage: 375 MG QD; IV
     Route: 042
     Dates: start: 20080917, end: 20080917
  3. DIOVAN HCT [Concomitant]
  4. CARDIO ASPIRINA [Concomitant]
  5. ZOLPIDEM [Concomitant]

REACTIONS (16)
  - ABDOMINAL PAIN UPPER [None]
  - AGRANULOCYTOSIS [None]
  - ANOREXIA [None]
  - ASTHENIA [None]
  - ATRIAL FIBRILLATION [None]
  - CHOLELITHIASIS [None]
  - DYSPNOEA [None]
  - INCORRECT ROUTE OF DRUG ADMINISTRATION [None]
  - KLEBSIELLA SEPSIS [None]
  - NO THERAPEUTIC RESPONSE [None]
  - ORTHOSTATIC HYPOTENSION [None]
  - OVERDOSE [None]
  - PHLEBITIS [None]
  - PYREXIA [None]
  - SCAR PAIN [None]
  - SEPTIC SHOCK [None]
